FAERS Safety Report 10688303 (Version 4)
Quarter: 2016Q3

REPORT INFORMATION
  Report Type: Report from Study
  Country: US (occurrence: US)
  Receive Date: 20150102
  Receipt Date: 20160803
  Transmission Date: 20161109
  Serious: Yes (Other)
  Sender: FDA-Public Use
  Company Number: US-SA-2014SA176863

PATIENT
  Age: 54 Year
  Sex: Female

DRUGS (1)
  1. AUBAGIO [Suspect]
     Active Substance: TERIFLUNOMIDE
     Indication: MULTIPLE SCLEROSIS
     Route: 048
     Dates: start: 20140610

REACTIONS (12)
  - Nystagmus [Not Recovered/Not Resolved]
  - Dizziness [Not Recovered/Not Resolved]
  - Immune system disorder [Unknown]
  - Flushing [Unknown]
  - Nausea [Unknown]
  - Multiple sclerosis relapse [Unknown]
  - Pruritus [Not Recovered/Not Resolved]
  - Inappropriate schedule of drug administration [Unknown]
  - Vertigo [Not Recovered/Not Resolved]
  - Eye pain [Not Recovered/Not Resolved]
  - Facial neuralgia [Not Recovered/Not Resolved]
  - Oropharyngeal pain [Unknown]

NARRATIVE: CASE EVENT DATE: 2014
